FAERS Safety Report 7599860-5 (Version None)
Quarter: 2011Q3

REPORT INFORMATION
  Report Type: 
  Country: None (occurrence: None)
  Receive Date: 20110711
  Receipt Date: 20110705
  Transmission Date: 20111222
  Serious: No
  Sender: FDA-Public Use
  Company Number: US-PFIZER INC-2011150187

PATIENT
  Sex: Male
  Weight: 89.3 kg

DRUGS (1)
  1. SUTENT [Suspect]
     Indication: GASTROINTESTINAL STROMAL TUMOUR
     Dosage: 50 MG, 1X/DAY (TAKE 1 CAPSULE BY MOUTH EVERY DAY FOR 4 WEEKS ON, AND 2 WEEKS OFF)
     Route: 048
     Dates: start: 20110528

REACTIONS (2)
  - HAIR COLOUR CHANGES [None]
  - NAUSEA [None]
